FAERS Safety Report 7030679-X (Version None)
Quarter: 2010Q4

REPORT INFORMATION
  Report Type: 
  Country: None (occurrence: None)
  Receive Date: 20101006
  Receipt Date: 20100924
  Transmission Date: 20110411
  Serious: Yes (Other)
  Sender: FDA-Public Use
  Company Number: AU-PFIZER INC-2010113586

PATIENT
  Age: 72 Year
  Sex: Female

DRUGS (7)
  1. LYRICA [Suspect]
     Indication: NEURALGIA
     Dosage: 75 MG, SINGLE DOSE AT NIGHT
     Dates: start: 20100901, end: 20100902
  2. COLOXYL WITH SENNA [Concomitant]
  3. FRUSEMIDE [Concomitant]
     Dosage: 20 MG, 1X/DAY
  4. MS CONTIN [Concomitant]
     Dosage: 10 MG, 2X/DAY
  5. PANTOPRAZOLE [Concomitant]
     Dosage: 40 MG, 1X/DAY
  6. MORPHINE [Concomitant]
     Dosage: 3 MG, EVERY FOUR HOURS AS NEEDED
  7. PERINDOPRIL [Concomitant]
     Dosage: 4 MG, 1X/DAY

REACTIONS (3)
  - DEPRESSED LEVEL OF CONSCIOUSNESS [None]
  - MUSCLE CONTRACTIONS INVOLUNTARY [None]
  - MYOCLONUS [None]
